FAERS Safety Report 21823146 (Version 1)
Quarter: 2023Q1

REPORT INFORMATION
  Report Type: Spontaneous
  Country: US (occurrence: US)
  Receive Date: 20230105
  Receipt Date: 20230105
  Transmission Date: 20230418
  Serious: Yes (Hospitalization, Other)
  Sender: FDA-Public Use
  Company Number: US-AMGEN-USASP2022226371

PATIENT
  Age: 68 Year
  Sex: Male

DRUGS (4)
  1. FILGRASTIM [Suspect]
     Active Substance: FILGRASTIM
     Indication: White blood cell count decreased
     Dosage: UNK
     Route: 065
  2. FILGRASTIM [Suspect]
     Active Substance: FILGRASTIM
     Indication: Off label use
  3. Immunoglobulin [Concomitant]
     Dosage: UNK
     Route: 040
  4. BENZNIDAZOLE [Concomitant]
     Active Substance: BENZNIDAZOLE
     Indication: Chagas^ cardiomyopathy
     Dosage: UNK

REACTIONS (5)
  - Renal failure [Unknown]
  - Cardiogenic shock [Unknown]
  - Ventricular tachycardia [Unknown]
  - Atrioventricular block complete [Unknown]
  - Off label use [Unknown]
